FAERS Safety Report 6261982-9 (Version None)
Quarter: 2009Q3

REPORT INFORMATION
  Report Type: 
  Country: None (occurrence: None)
  Receive Date: 20090709
  Receipt Date: 20090629
  Transmission Date: 20100115
  Serious: Yes (Hospitalization)
  Sender: FDA-Public Use
  Company Number: US-ABBOTT-09P-163-0583997-00

PATIENT
  Age: 73 Year
  Sex: Male

DRUGS (4)
  1. WARFARIN SODIUM [Suspect]
     Indication: DRUG USE FOR UNKNOWN INDICATION
     Dosage: 5MG ALTERNATING WITH 7.5MG/DAY
  2. WARFARIN SODIUM [Interacting]
     Dosage: NOT REPORTED
  3. GEMFIBROZIL [Interacting]
     Indication: DRUG USE FOR UNKNOWN INDICATION
  4. VITAMIN K [Concomitant]
     Indication: DRUG USE FOR UNKNOWN INDICATION

REACTIONS (2)
  - DRUG INTERACTION [None]
  - INTERNATIONAL NORMALISED RATIO INCREASED [None]
